FAERS Safety Report 15245951 (Version 1)
Quarter: 2018Q3

REPORT INFORMATION
  Report Type: Spontaneous
  Country: CN (occurrence: CN)
  Receive Date: 20180806
  Receipt Date: 20180806
  Transmission Date: 20181010
  Serious: Yes (Other)
  Sender: FDA-Public Use
  Company Number: CN-PFIZER INC-2018312075

PATIENT
  Age: 57 Year
  Sex: Male
  Weight: 65 kg

DRUGS (1)
  1. EFFEXOR XR [Suspect]
     Active Substance: VENLAFAXINE HYDROCHLORIDE
     Indication: DEPRESSION
     Dosage: 1 TABLET, 1X/DAY
     Route: 048
     Dates: start: 20180529, end: 20180530

REACTIONS (1)
  - Withdrawal arrhythmia [Recovering/Resolving]

NARRATIVE: CASE EVENT DATE: 20180530
